FAERS Safety Report 9830337 (Version 1)
Quarter: 2014Q1

REPORT INFORMATION
  Report Type: Spontaneous
  Country: US (occurrence: US)
  Receive Date: 20140120
  Receipt Date: 20140120
  Transmission Date: 20141002
  Serious: No
  Sender: FDA-Public Use
  Company Number: US-B.I. PHARMACEUTICALS,INC./RIDGEFIELD-2014-BI-01179BP

PATIENT
  Sex: 0

DRUGS (1)
  1. TRADJENTA [Suspect]
     Dosage: 5 MG
     Route: 048
     Dates: start: 201307

REACTIONS (1)
  - Glycosylated haemoglobin decreased [Recovered/Resolved]
